FAERS Safety Report 14386989 (Version 1)
Quarter: 2018Q1

REPORT INFORMATION
  Report Type: Spontaneous
  Country: US (occurrence: US)
  Receive Date: 20180115
  Receipt Date: 20180115
  Transmission Date: 20180509
  Serious: Yes (Other)
  Sender: FDA-Public Use
  Company Number: US-SA-2017SA160383

PATIENT
  Age: 48 Year
  Sex: Female
  Weight: 97.52 kg

DRUGS (19)
  1. VITAMIN D/CALCIUM [Concomitant]
     Route: 065
  2. LASIX [Concomitant]
     Active Substance: FUROSEMIDE
  3. ARIMIDEX [Concomitant]
     Active Substance: ANASTROZOLE
  4. PAXIL [Concomitant]
     Active Substance: PAROXETINE HYDROCHLORIDE
  5. KCL [Concomitant]
     Active Substance: POTASSIUM CHLORIDE
     Route: 065
  6. CRESTOR [Concomitant]
     Active Substance: ROSUVASTATIN CALCIUM
  7. TAXOTERE [Suspect]
     Active Substance: DOCETAXEL
     Route: 051
     Dates: start: 20070723, end: 20070723
  8. XANAX [Concomitant]
     Active Substance: ALPRAZOLAM
  9. AMARYL [Concomitant]
     Active Substance: GLIMEPIRIDE
  10. TOPROL XL [Concomitant]
     Active Substance: METOPROLOL SUCCINATE
  11. TAXOTERE [Suspect]
     Active Substance: DOCETAXEL
     Route: 051
     Dates: start: 20071001, end: 20071001
  12. ASPIRIN. [Concomitant]
     Active Substance: ASPIRIN
  13. GLUCOPHAGE [Concomitant]
     Active Substance: METFORMIN HYDROCHLORIDE
     Route: 065
  14. FISH OIL [Concomitant]
     Active Substance: FISH OIL
     Route: 065
  15. ZETIA [Concomitant]
     Active Substance: EZETIMIBE
  16. ACTONEL [Concomitant]
     Active Substance: RISEDRONATE SODIUM
     Route: 065
  17. ALUPENT [Concomitant]
     Active Substance: METAPROTERENOL SULFATE
     Route: 065
  18. METHOTREXATE. [Concomitant]
     Active Substance: METHOTREXATE
  19. HYZAAR [Concomitant]
     Active Substance: HYDROCHLOROTHIAZIDE\LOSARTAN POTASSIUM

REACTIONS (2)
  - Psychological trauma [Unknown]
  - Alopecia [Not Recovered/Not Resolved]
